FAERS Safety Report 7522716-0 (Version None)
Quarter: 2011Q2

REPORT INFORMATION
  Report Type: 
  Country: None (occurrence: None)
  Receive Date: 20110603
  Receipt Date: 20110528
  Transmission Date: 20111010
  Serious: Yes (Other)
  Sender: FDA-Public Use
  Company Number: US-ABBOTT-11P-163-0729631-00

PATIENT
  Age: 24 Year
  Sex: Male

DRUGS (2)
  1. HUMIRA [Suspect]
     Indication: CROHN'S DISEASE
     Dates: start: 20110201
  2. PRO-BIOTIC ACIDOPHILUS [Concomitant]
     Indication: SUPPLEMENTATION THERAPY

REACTIONS (3)
  - PYREXIA [None]
  - FISTULA [None]
  - ABSCESS [None]
